FAERS Safety Report 9919152 (Version 2)
Quarter: 2014Q1

REPORT INFORMATION
  Report Type: Spontaneous
  Country: FR (occurrence: FR)
  Receive Date: 20140224
  Receipt Date: 20140324
  Transmission Date: 20141002
  Serious: Yes (Other)
  Sender: FDA-Public Use
  Company Number: FR-TEVA-464185ISR

PATIENT
  Age: 16 Year
  Sex: Female

DRUGS (2)
  1. LEELOO [Suspect]
     Dosage: STARTED 1 YEAR AGO
     Dates: start: 2013
  2. OFLOCET [Suspect]
     Indication: URINARY TRACT INFECTION
     Dosage: 2 TABLET DAILY;
     Route: 048

REACTIONS (5)
  - Pyelonephritis [Unknown]
  - Abdominal pain [Unknown]
  - Hepatosplenomegaly [Unknown]
  - Skin lesion [Unknown]
  - Erythema nodosum [Recovered/Resolved]
